FAERS Safety Report 9093227 (Version 1)
Quarter: 2013Q1

REPORT INFORMATION
  Report Type: Report from Study
  Country: US (occurrence: US)
  Receive Date: 20130131
  Receipt Date: 20130131
  Transmission Date: 20140127
  Serious: No
  Sender: FDA-Public Use
  Company Number: US-ABBOTT-12P-163-1002230-00

PATIENT
  Age: 47 Year
  Sex: Female

DRUGS (6)
  1. HUMIRA [Suspect]
     Indication: PSORIASIS
     Route: 058
     Dates: start: 20120504
  2. SYNTHROID [Concomitant]
     Indication: HYPOTHYROIDISM
  3. LOSARTAN [Concomitant]
     Indication: HYPERTENSION
  4. PROZAC [Concomitant]
     Indication: DEPRESSION
  5. WELLBUTRIN XL [Concomitant]
     Indication: DEPRESSION
  6. ALBUTEROL [Concomitant]
     Indication: ASTHMA

REACTIONS (3)
  - Blood urine present [Recovering/Resolving]
  - Dysuria [Recovering/Resolving]
  - Flank pain [Recovering/Resolving]
